FAERS Safety Report 7141169-8 (Version None)
Quarter: 2010Q4

REPORT INFORMATION
  Report Type: 
  Country: None (occurrence: None)
  Receive Date: 20101207
  Receipt Date: 20101124
  Transmission Date: 20110411
  Serious: Yes (Life-Threatening, Other)
  Sender: FDA-Public Use
  Company Number: JP-CELGENEUS-087-21880-10101247

PATIENT
  Sex: Male

DRUGS (6)
  1. REVLIMID [Suspect]
     Indication: MULTIPLE MYELOMA
     Route: 048
     Dates: start: 20100930, end: 20101007
  2. DECADRON [Concomitant]
     Indication: MULTIPLE MYELOMA
     Route: 048
     Dates: start: 20100929, end: 20101002
  3. PREDNISOLONE [Concomitant]
     Route: 048
     Dates: start: 20101004, end: 20101007
  4. LASIX [Concomitant]
     Route: 065
  5. DAI-KENCHU-TO [Concomitant]
     Route: 065
  6. PROTON PUMP INHIBITOR [Concomitant]
     Route: 055

REACTIONS (5)
  - ACUTE RESPIRATORY DISTRESS SYNDROME [None]
  - HAEMOGLOBIN DECREASED [None]
  - NEUROGENIC BLADDER [None]
  - PNEUMONIA [None]
  - PNEUMONIA STAPHYLOCOCCAL [None]
